FAERS Safety Report 9296908 (Version 1)
Quarter: 2013Q2

REPORT INFORMATION
  Report Type: Spontaneous
  Country: US (occurrence: US)
  Receive Date: 20130518
  Receipt Date: 20130518
  Transmission Date: 20140414
  Serious: Yes (Hospitalization)
  Sender: FDA-Public Use
  Company Number: US-009507513-1305USA008548

PATIENT
  Age: 30 Year
  Sex: Male

DRUGS (6)
  1. SAPHRIS [Suspect]
     Indication: BIPOLAR DISORDER
     Dosage: 10 MG, BID
     Route: 060
     Dates: start: 20130429, end: 20130509
  2. SAPHRIS [Suspect]
     Dosage: 5 MG, UNK
     Route: 060
  3. TRAZODONE HYDROCHLORIDE [Concomitant]
  4. HYDROCHLOROTHIAZIDE [Concomitant]
  5. ZOLOFT [Concomitant]
     Dosage: 50 MG, QAM
  6. DEPAKOTE [Concomitant]
     Dosage: 500 DF, BID

REACTIONS (2)
  - Alcohol problem [Recovering/Resolving]
  - Akathisia [Recovering/Resolving]
